FAERS Safety Report 17334403 (Version 1)
Quarter: 2020Q1

REPORT INFORMATION
  Report Type: Report from Study
  Country: IT (occurrence: IT)
  Receive Date: 20200128
  Receipt Date: 20200128
  Transmission Date: 20200409
  Serious: Yes (Death, Other)
  Sender: FDA-Public Use
  Company Number: IT-ROCHE-2530033

PATIENT

DRUGS (21)
  1. LEDIPASVIR;SOFOSBUVIR [Suspect]
     Active Substance: LEDIPASVIR\SOFOSBUVIR
     Indication: HEPATITIS C
     Route: 065
  2. SIMEPREVIR [Suspect]
     Active Substance: SIMEPREVIR
     Indication: HEPATITIS C
     Route: 065
  3. ABACAVIR SULFATE;DOLUTEGRAVIR SODIUM;LAMIVUDINE [Concomitant]
     Active Substance: ABACAVIR SULFATE\DOLUTEGRAVIR SODIUM\LAMIVUDINE
  4. ABACAVIR SULFATE;LAMIVUDINE;ZIDOVUDINE [Concomitant]
  5. DACLATASVIR. [Suspect]
     Active Substance: DACLATASVIR
     Indication: HEPATITIS C
     Route: 065
  6. LAMIVUDINE;ZIDOVUDINE [Concomitant]
     Active Substance: LAMIVUDINE\ZIDOVUDINE
  7. ATAZANAVIR. [Concomitant]
     Active Substance: ATAZANAVIR
  8. EMTRICITABINE;RILPIVIRINE HYDROCHLORIDE;TENOFOVIR DISOPROXIL FUMARATE [Concomitant]
  9. EFAVIRENZ. [Concomitant]
     Active Substance: EFAVIRENZ
  10. RALTEGRAVIR. [Concomitant]
     Active Substance: RALTEGRAVIR
  11. ETRAVIRINE [Concomitant]
     Active Substance: ETRAVIRINE
  12. RIBAVIRIN. [Suspect]
     Active Substance: RIBAVIRIN
     Indication: HEPATITIS C
     Dosage: 800-1200 MG/DAY FOR DURATION OF 8, 12, 16 OR 24 WEEKS
     Route: 048
  13. SOFOSBUVIR;VELPATASVIR [Suspect]
     Active Substance: SOFOSBUVIR\VELPATASVIR
     Indication: HEPATITIS C
     Route: 065
  14. DOLUTEGRAVIR SODIUM;RILPIVIRINE HYDROCHLORIDE [Concomitant]
  15. DARUNAVIR [Concomitant]
     Active Substance: DARUNAVIR
  16. COBICISTAT;ELVITEGRAVIR;EMTRICITABINE;TENOFOVIR DISOPROXIL FUMARATE [Concomitant]
     Active Substance: COBICISTAT\ELVITEGRAVIR\EMTRICITABINE\TENOFOVIR DISOPROXIL FUMARATE
  17. RIBAVIRIN. [Suspect]
     Active Substance: RIBAVIRIN
     Route: 048
  18. DASABUVIR SODIUM MONOHYDRATE;OMBITASVIR;PARITAPREVIR;RITONAVIR [Suspect]
     Active Substance: DASABUVIR\OMBITASVIR\PARITAPREVIR\RITONAVIR
     Indication: HEPATITIS C
     Route: 065
  19. LOPINAVIR;RITONAVIR [Concomitant]
     Active Substance: LOPINAVIR\RITONAVIR
  20. INDINAVIR [Concomitant]
     Active Substance: INDINAVIR
  21. MARAVIROC [Concomitant]
     Active Substance: MARAVIROC

REACTIONS (3)
  - Hepatic failure [Unknown]
  - Anaemia [Unknown]
  - Death [Fatal]
